FAERS Safety Report 17924869 (Version 1)
Quarter: 2020Q2

REPORT INFORMATION
  Report Type: Spontaneous
  Country: US (occurrence: US)
  Receive Date: 20200622
  Receipt Date: 20200622
  Transmission Date: 20200714
  Serious: No
  Sender: FDA-Public Use
  Company Number: US-BAYER-2020-121723

PATIENT
  Age: 67 Year
  Sex: Female

DRUGS (2)
  1. CLARITIN [Suspect]
     Active Substance: LORATADINE
  2. FLECTOR RAPID [Concomitant]

REACTIONS (3)
  - Fall [None]
  - Hand fracture [None]
  - Dry mouth [Unknown]
